FAERS Safety Report 7597690-1 (Version None)
Quarter: 2011Q3

REPORT INFORMATION
  Report Type: 
  Country: None (occurrence: None)
  Receive Date: 20110708
  Receipt Date: 20110615
  Transmission Date: 20111222
  Serious: Yes (Hospitalization)
  Sender: FDA-Public Use
  Company Number: US-GLAXOSMITHKLINE-A0869760A

PATIENT
  Age: 59 Year
  Sex: Female
  Weight: 78.6 kg

DRUGS (3)
  1. CELEBREX [Concomitant]
  2. AVANDIA [Suspect]
     Indication: DIABETES MELLITUS
     Route: 048
     Dates: start: 19990101, end: 20070701
  3. AMARYL [Concomitant]

REACTIONS (2)
  - SURGERY [None]
  - MYOCARDIAL INFARCTION [None]
